FAERS Safety Report 10160734 (Version 3)
Quarter: 2014Q3

REPORT INFORMATION
  Report Type: Spontaneous
  Country: US (occurrence: US)
  Receive Date: 20140508
  Receipt Date: 20140721
  Transmission Date: 20150326
  Serious: Yes (Other)
  Sender: FDA-Public Use
  Company Number: US-TEVA-479823USA

PATIENT
  Sex: Female

DRUGS (1)
  1. RABEPRAZOLE [Suspect]
     Active Substance: RABEPRAZOLE
     Dates: start: 20140428

REACTIONS (9)
  - Diarrhoea [Unknown]
  - Adverse event [Unknown]
  - Speech disorder [Unknown]
  - Feeling jittery [Unknown]
  - Cardiac disorder [Unknown]
  - Headache [Unknown]
  - Dizziness [Unknown]
  - Laryngospasm [Unknown]
  - Oropharyngeal pain [Unknown]
